FAERS Safety Report 7285046-0 (Version None)
Quarter: 2011Q1

REPORT INFORMATION
  Report Type: 
  Country: None (occurrence: None)
  Receive Date: 20110210
  Receipt Date: 20110207
  Transmission Date: 20110831
  Serious: Yes (Other)
  Sender: FDA-Public Use
  Company Number: CA-PFIZER INC-2010018480

PATIENT
  Age: 35 Year
  Sex: Female
  Weight: 49.887 kg

DRUGS (7)
  1. CHAMPIX [Suspect]
     Dosage: 1 MG, 1X/DAY
  2. VITAMIN B-12 [Concomitant]
     Dosage: UNK
  3. CHAMPIX [Suspect]
     Indication: SMOKING CESSATION THERAPY
     Dosage: 0.5 MG, 1X/DAY (FOR 3 DAYS)
     Dates: start: 20071104, end: 20071109
  4. ESTROGEL [Concomitant]
     Dosage: UNK
  5. ASPIRIN [Concomitant]
     Dosage: 81 MG, UNK
  6. FOLIC ACID [Concomitant]
     Dosage: UNK
  7. VITAMIN B6 [Concomitant]
     Dosage: UNK

REACTIONS (5)
  - FEAR [None]
  - DEPRESSION [None]
  - MOOD ALTERED [None]
  - ANXIETY [None]
  - URTICARIA [None]
